FAERS Safety Report 15820386 (Version 1)
Quarter: 2019Q1

REPORT INFORMATION
  Report Type: Spontaneous
  Country: US (occurrence: US)
  Receive Date: 20190114
  Receipt Date: 20190114
  Transmission Date: 20190417
  Serious: No
  Sender: FDA-Public Use
  Company Number: US-APOTEX-2018AP022533

PATIENT
  Age: 64 Year
  Sex: Male

DRUGS (9)
  1. BUPROPION. [Suspect]
     Active Substance: BUPROPION
     Dosage: 50 MG, UNK
     Route: 065
  2. CITALOPRAM [Suspect]
     Active Substance: CITALOPRAM HYDROBROMIDE
     Indication: DEPRESSION
     Dosage: 40 MG, UNKNOWN
     Route: 065
  3. DULOXETINE. [Suspect]
     Active Substance: DULOXETINE
     Indication: DEPRESSION
     Dosage: 60 MG, UNKNOWN
     Route: 065
  4. DULOXETINE. [Suspect]
     Active Substance: DULOXETINE
     Dosage: 30 MG, UNK
     Route: 065
  5. BUPROPION. [Suspect]
     Active Substance: BUPROPION
     Indication: DEPRESSION
     Dosage: 150 MG, DAILY
     Route: 065
  6. VENLAFAXINE [Suspect]
     Active Substance: VENLAFAXINE HYDROCHLORIDE
     Indication: DEPRESSION
     Dosage: 75 MG, UNKNOWN
     Route: 065
  7. BUPROPION. [Suspect]
     Active Substance: BUPROPION
     Dosage: 100 MG, ONE HALF TABLETS DAILY
     Route: 065
  8. SERTRALINE [Suspect]
     Active Substance: SERTRALINE HYDROCHLORIDE
     Indication: DEPRESSION
     Dosage: UNK, UNKNOWN
     Route: 065
  9. BUPROPION. [Suspect]
     Active Substance: BUPROPION
     Dosage: 100 MG, UNKNOWN
     Route: 065

REACTIONS (5)
  - Night sweats [Recovered/Resolved]
  - Irritability [Recovered/Resolved]
  - Sedation complication [Unknown]
  - Anxiety [Recovered/Resolved]
  - Tearfulness [Recovered/Resolved]
